FAERS Safety Report 7540765-3 (Version None)
Quarter: 2011Q2

REPORT INFORMATION
  Report Type: 
  Country: None (occurrence: None)
  Receive Date: 20110610
  Receipt Date: 20110603
  Transmission Date: 20111010
  Serious: Yes (Other)
  Sender: FDA-Public Use
  Company Number: DE-ROCHE-775823

PATIENT
  Sex: Female

DRUGS (4)
  1. DEKRISTOL [Concomitant]
     Indication: OSTEOPOROSIS
     Route: 048
     Dates: start: 20100812
  2. DEKRISTOL [Concomitant]
     Route: 048
     Dates: start: 20110501
  3. L-THYROXIN HENNING 100 [Concomitant]
  4. BONIVA [Suspect]
     Indication: OSTEOPOROSIS
     Dosage: FURTHER APPLICATIONS ON 12-NOV-2010 AND ON 11-FEB-2011
     Route: 042
     Dates: start: 20100812, end: 20110211

REACTIONS (9)
  - GROIN PAIN [None]
  - ALOPECIA [None]
  - HEADACHE [None]
  - GINGIVAL PAIN [None]
  - DRY MOUTH [None]
  - LYMPHADENOPATHY [None]
  - TREMOR [None]
  - BONE MARROW OEDEMA [None]
  - DYSPNOEA [None]
